FAERS Safety Report 20825803 (Version 2)
Quarter: 2022Q2

REPORT INFORMATION
  Report Type: Spontaneous
  Country: NL (occurrence: None)
  Receive Date: 20220513
  Receipt Date: 20220602
  Transmission Date: 20220721
  Serious: Yes (Other)
  Sender: FDA-Public Use
  Company Number: NL-ROCHE-3091913

PATIENT
  Age: 43 Year
  Sex: Female

DRUGS (1)
  1. OCRELIZUMAB [Suspect]
     Active Substance: OCRELIZUMAB
     Indication: Relapsing-remitting multiple sclerosis
     Dosage: 2/JAAR
     Route: 065
     Dates: start: 20190131

REACTIONS (1)
  - Pyoderma gangrenosum [Not Recovered/Not Resolved]

NARRATIVE: CASE EVENT DATE: 20220201
